FAERS Safety Report 14095590 (Version 4)
Quarter: 2018Q1

REPORT INFORMATION
  Report Type: Report from Study
  Country: US (occurrence: US)
  Receive Date: 20171016
  Receipt Date: 20180201
  Transmission Date: 20180508
  Serious: Yes (Hospitalization, Other)
  Sender: FDA-Public Use
  Company Number: US-ACTELION-A-US2016-134990

PATIENT
  Age: 56 Year
  Sex: Female
  Weight: 61.68 kg

DRUGS (5)
  1. VELETRI [Suspect]
     Active Substance: EPOPROSTENOL
     Dosage: UNK
     Route: 042
  2. XARELTO [Concomitant]
     Active Substance: RIVAROXABAN
  3. VELETRI [Suspect]
     Active Substance: EPOPROSTENOL
     Indication: PULMONARY HYPERTENSION
     Dosage: 37 NG/KG, PER MIN
     Route: 042
  4. VELETRI [Suspect]
     Active Substance: EPOPROSTENOL
     Dosage: 34.5 NG/KG, PER MIN
     Route: 042
     Dates: start: 20141001
  5. DILTIAZEM. [Concomitant]
     Active Substance: DILTIAZEM

REACTIONS (9)
  - Atrial fibrillation [Unknown]
  - Catheter site discharge [Unknown]
  - Weight decreased [Unknown]
  - Arrhythmia [Unknown]
  - Pain in extremity [Unknown]
  - Catheter site infection [Unknown]
  - Rash [Unknown]
  - Dysstasia [Unknown]
  - Pain in jaw [Unknown]
